FAERS Safety Report 6616213-4 (Version None)
Quarter: 2010Q1

REPORT INFORMATION
  Report Type: 
  Country: None (occurrence: None)
  Receive Date: 20100305
  Receipt Date: 20100226
  Transmission Date: 20100710
  Serious: Yes (Hospitalization)
  Sender: FDA-Public Use
  Company Number: PHHO2010JP02747

PATIENT
  Sex: Female
  Weight: 48 kg

DRUGS (29)
  1. AFINITOR [Suspect]
     Indication: BREAST CANCER
     Dosage: CODE NOT BROKEN
     Route: 048
     Dates: start: 20091211, end: 20091229
  2. BLINDED NO TREATMENT RECEIVED NOMED [Suspect]
     Indication: BREAST CANCER
     Dosage: CODE NOT BROKEN
     Route: 048
     Dates: start: 20091211, end: 20091229
  3. BLINDED PLACEBO COMP-PLA+ [Suspect]
     Indication: BREAST CANCER
     Dosage: CODE NOT BROKEN
     Route: 048
     Dates: start: 20091211, end: 20091229
  4. AFINITOR [Suspect]
     Dosage: NO TREATMENT
     Dates: start: 20091230, end: 20100107
  5. BLINDED NO TREATMENT RECEIVED NOMED [Suspect]
     Dosage: NO TREATMENT
     Dates: start: 20091230, end: 20100107
  6. BLINDED PLACEBO COMP-PLA+ [Suspect]
     Dosage: NO TREATMENT
     Dates: start: 20091230, end: 20100107
  7. AFINITOR [Suspect]
     Dosage: CODE NOT BROKEN
     Route: 048
     Dates: start: 20100108, end: 20100204
  8. BLINDED NO TREATMENT RECEIVED NOMED [Suspect]
     Dosage: CODE NOT BROKEN
     Route: 048
     Dates: start: 20100108, end: 20100204
  9. BLINDED PLACEBO COMP-PLA+ [Suspect]
     Dosage: CODE NOT BROKEN
     Route: 048
     Dates: start: 20100108, end: 20100204
  10. AFINITOR [Suspect]
     Dosage: NO TREATMENT
     Dates: start: 20100205, end: 20100208
  11. BLINDED NO TREATMENT RECEIVED NOMED [Suspect]
     Dosage: NO TREATMENT
     Dates: start: 20100205, end: 20100208
  12. BLINDED PLACEBO COMP-PLA+ [Suspect]
     Dosage: NO TREATMENT
     Dates: start: 20100205, end: 20100208
  13. AFINITOR [Suspect]
     Dosage: CODE NOT BROKEN
     Route: 048
     Dates: start: 20100209, end: 20100220
  14. BLINDED NO TREATMENT RECEIVED NOMED [Suspect]
     Dosage: CODE NOT BROKEN
     Route: 048
     Dates: start: 20100209, end: 20100220
  15. BLINDED PLACEBO COMP-PLA+ [Suspect]
     Dosage: CODE NOT BROKEN
     Route: 048
     Dates: start: 20100209, end: 20100220
  16. AFINITOR [Suspect]
     Dosage: NO TREATMENT
     Route: 048
     Dates: start: 20100221, end: 20100224
  17. BLINDED NO TREATMENT RECEIVED NOMED [Suspect]
     Dosage: NO TREATMENT
     Route: 048
     Dates: start: 20100221, end: 20100224
  18. BLINDED PLACEBO COMP-PLA+ [Suspect]
     Dosage: NO TREATMENT
     Route: 048
     Dates: start: 20100221, end: 20100224
  19. AFINITOR [Suspect]
     Dosage: CODE NOT BROKEN
     Route: 048
     Dates: start: 20100225
  20. BLINDED NO TREATMENT RECEIVED NOMED [Suspect]
     Dosage: CODE NOT BROKEN
     Route: 048
     Dates: start: 20100225
  21. BLINDED PLACEBO COMP-PLA+ [Suspect]
     Dosage: CODE NOT BROKEN
     Route: 048
     Dates: start: 20100225
  22. ZOMETA [Suspect]
     Indication: OSTEOPOROSIS PROPHYLAXIS
     Dosage: 4MG EVERY 4 WEEKS
     Route: 042
     Dates: start: 20090702
  23. COMPARATOR EXEMESTANE [Suspect]
     Dosage: 25MG
     Route: 048
     Dates: start: 20091211
  24. VOLTAREN [Concomitant]
     Indication: PAIN
  25. PURSENNID [Concomitant]
     Indication: CONSTIPATION
  26. NEUROTROPIN [Concomitant]
     Indication: PAIN
  27. REBAMIPIDE [Concomitant]
  28. FLOMOX [Concomitant]
  29. LOXONIN [Concomitant]

REACTIONS (7)
  - HYPOAESTHESIA ORAL [None]
  - MOUTH HAEMORRHAGE [None]
  - PAIN [None]
  - PERIODONTITIS [None]
  - STOMATITIS [None]
  - SWELLING [None]
  - TOOTH EXTRACTION [None]
